FAERS Safety Report 13192587 (Version 1)
Quarter: 2017Q1

REPORT INFORMATION
  Report Type: Spontaneous
  Country: FR (occurrence: FR)
  Receive Date: 20170207
  Receipt Date: 20170207
  Transmission Date: 20170428
  Serious: Yes (Hospitalization)
  Sender: FDA-Public Use
  Company Number: FR-BEH-2017077743

PATIENT
  Age: 81 Year
  Sex: Female

DRUGS (5)
  1. COUMADINE [Concomitant]
     Active Substance: WARFARIN SODIUM
  2. PRIVIGEN [Suspect]
     Active Substance: HUMAN IMMUNOGLOBULIN G
     Indication: PRODUCT USED FOR UNKNOWN INDICATION
     Dosage: UNK
     Route: 042
     Dates: start: 20161112, end: 20161112
  3. LOCOID [Concomitant]
     Active Substance: HYDROCORTISONE BUTYRATE
  4. SIMVASTATIN. [Concomitant]
     Active Substance: SIMVASTATIN
     Dosage: 20 MG, UNK
     Route: 065
  5. RITUXIMAB [Concomitant]
     Active Substance: RITUXIMAB
     Indication: LYMPHOMA
     Dosage: EVERY 2 MONTHS
     Route: 065

REACTIONS (10)
  - Toxic skin eruption [Recovered/Resolved]
  - Pruritus [Recovered/Resolved]
  - Eczema [Recovered/Resolved]
  - Pruritus [Recovered/Resolved]
  - Dermatitis exfoliative [Recovered/Resolved]
  - Eosinophilia [Recovered/Resolved]
  - Skin exfoliation [Recovered/Resolved]
  - Skin discolouration [Recovered/Resolved]
  - Erythema [Recovered/Resolved]
  - Hyperkeratosis [Recovered/Resolved]

NARRATIVE: CASE EVENT DATE: 201611
